FAERS Safety Report 15759877 (Version 1)
Quarter: 2018Q4

REPORT INFORMATION
  Report Type: Spontaneous
  Country: US (occurrence: US)
  Receive Date: 20181226
  Receipt Date: 20181226
  Transmission Date: 20190205
  Serious: Yes (Hospitalization)
  Sender: FDA-Public Use
  Company Number: US-DSJP-DSU-2017-133131

PATIENT

DRUGS (1)
  1. AZOR [Suspect]
     Active Substance: AMLODIPINE BESYLATE\OLMESARTAN MEDOXOMIL
     Indication: PRODUCT USED FOR UNKNOWN INDICATION
     Dosage: 5/20MG, UNK
     Dates: start: 2009, end: 20150619

REACTIONS (2)
  - Erosive duodenitis [Unknown]
  - Sprue-like enteropathy [Recovering/Resolving]

NARRATIVE: CASE EVENT DATE: 20111219
